FAERS Safety Report 6783422-3 (Version None)
Quarter: 2010Q2

REPORT INFORMATION
  Report Type: 
  Country: None (occurrence: None)
  Receive Date: 20100622
  Receipt Date: 20100608
  Transmission Date: 20101027
  Serious: Yes (Disabling, Other)
  Sender: FDA-Public Use
  Company Number: PHHY2010US36837

PATIENT
  Sex: Female

DRUGS (4)
  1. GENTEAL MODERATE LUBRICANT EYE DROPS (NVO) [Suspect]
     Dosage: UNK,
  2. HYPOTEARS PF (NVO) [Suspect]
     Dosage: UNK,
  3. MIACALCIN [Suspect]
  4. TEARS NATURALE [Suspect]
     Dosage: UNK,

REACTIONS (3)
  - DRUG INEFFECTIVE [None]
  - EYE HAEMORRHAGE [None]
  - MACULAR DEGENERATION [None]
